FAERS Safety Report 5085554-7 (Version None)
Quarter: 2006Q3

REPORT INFORMATION
  Report Type: 
  Country: None (occurrence: None)
  Receive Date: 20060822
  Receipt Date: 20060818
  Transmission Date: 20061208
  Serious: Yes (Life-Threatening, Hospitalization)
  Sender: FDA-Public Use
  Company Number: PHRM2006FR02338

PATIENT
  Sex: Female
  Weight: 1.5 kg

DRUGS (5)
  1. SOLU-MEDROL [Suspect]
     Route: 064
  2. IMOVANE [Suspect]
     Route: 064
  3. SEROPRAM [Suspect]
     Route: 064
  4. REBIF [Suspect]
     Route: 064
  5. LIORESAL [Suspect]
     Route: 064

REACTIONS (9)
  - AGITATION NEONATAL [None]
  - APGAR SCORE LOW [None]
  - DEPRESSED LEVEL OF CONSCIOUSNESS [None]
  - DRUG EXPOSURE DURING PREGNANCY [None]
  - GROWTH RETARDATION [None]
  - HEART RATE DECREASED [None]
  - INTUBATION [None]
  - LIFE SUPPORT [None]
  - PREMATURE BABY [None]
